FAERS Safety Report 11465535 (Version 3)
Quarter: 2016Q1

REPORT INFORMATION
  Report Type: Spontaneous
  Country: FI (occurrence: FI)
  Receive Date: 20150907
  Receipt Date: 20160119
  Transmission Date: 20160525
  Serious: Yes (Other)
  Sender: FDA-Public Use
  Company Number: FI-ROCHE-1629533

PATIENT
  Age: 32 Year
  Sex: Female

DRUGS (4)
  1. ZELBORAF [Suspect]
     Active Substance: VEMURAFENIB
     Indication: METASTATIC MALIGNANT MELANOMA
     Dosage: 4 TABLETS TWICE A DAY
     Route: 065
     Dates: start: 201505, end: 2015
  2. ZELBORAF [Suspect]
     Active Substance: VEMURAFENIB
     Dosage: INTERRUPTED, 2 TABLETS
     Route: 065
     Dates: start: 2015, end: 20150821
  3. PREDNISOLON [Concomitant]
     Active Substance: PREDNISOLONE
     Route: 065
  4. ZELBORAF [Suspect]
     Active Substance: VEMURAFENIB
     Dosage: 240 MG 2 TABLETS
     Route: 065
     Dates: start: 20150826, end: 20151110

REACTIONS (5)
  - Iritis [Not Recovered/Not Resolved]
  - Arthralgia [Recovered/Resolved]
  - C-reactive protein increased [Recovered/Resolved]
  - Haemoglobin decreased [Unknown]
  - Pyrexia [Recovered/Resolved]

NARRATIVE: CASE EVENT DATE: 2015
